FAERS Safety Report 8503928-6 (Version None)
Quarter: 2012Q3

REPORT INFORMATION
  Report Type: 
  Country: None (occurrence: None)
  Receive Date: 20120711
  Receipt Date: 20120703
  Transmission Date: 20120928
  Serious: Yes (Other)
  Sender: FDA-Public Use
  Company Number: JP-VERTEX PHARMACEUTICALS INC.-AE-2012-006071

PATIENT
  Age: 64 Year
  Sex: Female

DRUGS (12)
  1. EVISTA [Concomitant]
     Route: 048
     Dates: start: 20120213
  2. TELAVIC (TELAPREVIR) [Suspect]
     Indication: HEPATITIS C
     Route: 048
     Dates: start: 20120130, end: 20120423
  3. RIBAVIRIN [Concomitant]
     Route: 048
     Dates: start: 20120220
  4. RIBAVIRIN [Concomitant]
     Indication: HEPATITIS C
     Route: 048
     Dates: start: 20120130, end: 20120219
  5. PEGINTERFERON ALFA-2B [Concomitant]
     Indication: HEPATITIS C
     Route: 058
     Dates: start: 20120130, end: 20120219
  6. PEGINTERFERON ALFA-2B [Concomitant]
     Route: 058
     Dates: start: 20120220
  7. EVAMYL [Concomitant]
     Route: 048
     Dates: end: 20120204
  8. LOCHOLEST [Concomitant]
     Route: 048
  9. LOCHOLEST [Concomitant]
     Route: 048
     Dates: start: 20120316
  10. ZETIA [Concomitant]
     Route: 048
     Dates: start: 20120213
  11. TSUMURA JUZENTAIHOTO EXTRACT GRANULES FOR ETHICAL USE [Concomitant]
     Route: 048
     Dates: start: 20120305
  12. OLMESARTAN MEDOXOMIL [Concomitant]
     Route: 048

REACTIONS (2)
  - ANAEMIA [None]
  - PANCYTOPENIA [None]
